FAERS Safety Report 4863373-1 (Version None)
Quarter: 2005Q4

REPORT INFORMATION
  Report Type: 
  Country: None (occurrence: None)
  Receive Date: 20051222
  Receipt Date: 20041103
  Transmission Date: 20060501
  Serious: No
  Sender: FDA-Public Use
  Company Number: US-GLAXOSMITHKLINE-A0532536A

PATIENT
  Age: 45 Year
  Sex: Female

DRUGS (2)
  1. FLONASE [Suspect]
     Dosage: 200MCG PER DAY
     Route: 045
  2. ZYRTEC-D 12 HOUR [Concomitant]

REACTIONS (1)
  - HEADACHE [None]
